FAERS Safety Report 25017835 (Version 1)
Quarter: 2025Q1

REPORT INFORMATION
  Report Type: Spontaneous
  Country: JP (occurrence: JP)
  Receive Date: 20250227
  Receipt Date: 20250227
  Transmission Date: 20250408
  Serious: Yes (Hospitalization, Other)
  Sender: MEDLEY PHARMACEUTICALS LIMITED
  Company Number: JP-MEDLEY-000025

PATIENT
  Age: 12 Year
  Sex: Female

DRUGS (1)
  1. LACOSAMIDE [Suspect]
     Active Substance: LACOSAMIDE
     Indication: Partial seizures
     Route: 065

REACTIONS (11)
  - Suicide attempt [Unknown]
  - Partial seizures with secondary generalisation [Recovered/Resolved]
  - Acidosis [Recovered/Resolved]
  - Hypercapnia [Recovered/Resolved]
  - Anticonvulsant drug level above therapeutic [Recovered/Resolved]
  - Intentional overdose [Unknown]
  - Poisoning [Unknown]
  - Cardiac arrest [Recovered/Resolved]
  - Electrocardiogram PR prolongation [Recovered/Resolved]
  - Electrocardiogram QRS complex prolonged [Recovered/Resolved]
  - Ventricular arrhythmia [Recovered/Resolved]
